FAERS Safety Report 19236045 (Version 4)
Quarter: 2021Q3

REPORT INFORMATION
  Report Type: Spontaneous
  Country: US (occurrence: US)
  Receive Date: 20210510
  Receipt Date: 20210906
  Transmission Date: 20211014
  Serious: No
  Sender: FDA-Public Use
  Company Number: US-SA-2021SA152125

PATIENT
  Age: 30 Year
  Sex: Female

DRUGS (32)
  1. LMX4 [Suspect]
     Active Substance: LIDOCAINE
  2. FIBERLAX [Concomitant]
  3. NORMAL SALINE [Concomitant]
     Active Substance: SODIUM CHLORIDE
  4. LIDOCAINE. [Concomitant]
     Active Substance: LIDOCAINE
  5. SOLU?MEDROL [Concomitant]
     Active Substance: METHYLPREDNISOLONE SODIUM SUCCINATE
     Dosage: 125 MG/2 ML VIAL
  6. DIPHENHYDRAMINE HYDROCHLORIDE. [Concomitant]
     Active Substance: DIPHENHYDRAMINE HYDROCHLORIDE
  7. DUPIXENT [Suspect]
     Active Substance: DUPILUMAB
     Indication: ORTHOSTATIC HYPOTENSION
     Dosage: 300 MG, QOW
     Route: 058
     Dates: start: 202005
  8. DUPIXENT [Suspect]
     Active Substance: DUPILUMAB
     Indication: AUTONOMIC NEUROPATHY
  9. CLARITINE [Concomitant]
     Active Substance: LORATADINE
  10. DUPIXENT [Suspect]
     Active Substance: DUPILUMAB
     Indication: DERMATITIS ALLERGIC
  11. FLONASE ALLERGY RELIEF [Concomitant]
     Active Substance: FLUTICASONE PROPIONATE
  12. HEPARIN [Concomitant]
     Active Substance: HEPARIN SODIUM
  13. ACETAMINOPHEN. [Concomitant]
     Active Substance: ACETAMINOPHEN
  14. MIRALAX [Concomitant]
     Active Substance: POLYETHYLENE GLYCOL 3350
     Dosage: 17 G/DOSE POWDER
  15. GAMUNEX?C [Suspect]
     Active Substance: HUMAN IMMUNOGLOBULIN G
     Route: 042
  16. AMERGE [Concomitant]
     Active Substance: NARATRIPTAN HYDROCHLORIDE
     Dosage: UNK
  17. NORMAL SALINE [Concomitant]
     Active Substance: SODIUM CHLORIDE
  18. DIPHENHYDRAMINE. [Concomitant]
     Active Substance: DIPHENHYDRAMINE
  19. VITAMIN B COMPLEX [Concomitant]
     Active Substance: CYANOCOBALAMIN\DEXPANTHENOL\NIACINAMIDE\PYRIDOXINE HYDROCHLORIDE\RIBOFLAVIN 5^-PHOSPHATE SODIUM\THIAMINE HYDROCHLORIDE\VITAMIN B COMPLEX
     Dosage: UNK
  20. SODIUM CHLORIDE. [Concomitant]
     Active Substance: SODIUM CHLORIDE
  21. DUPIXENT [Suspect]
     Active Substance: DUPILUMAB
     Indication: MIGRAINE WITHOUT AURA
  22. ALLEGRA ALLERGY [Concomitant]
     Active Substance: FEXOFENADINE HYDROCHLORIDE
     Dosage: UNK
  23. AMITRIPTYLINE HCL [Concomitant]
     Active Substance: AMITRIPTYLINE
     Dosage: UNK
  24. GABAPENTIN. [Concomitant]
     Active Substance: GABAPENTIN
  25. EPINEPHRINE. [Concomitant]
     Active Substance: EPINEPHRINE
  26. COVID?19 VACCINE [Concomitant]
     Indication: COVID-19 IMMUNISATION
  27. DUPIXENT [Suspect]
     Active Substance: DUPILUMAB
     Indication: CEREBRAL PALSY
  28. VITAMIN D3 [Concomitant]
     Active Substance: CHOLECALCIFEROL
  29. BOTOX [Concomitant]
     Active Substance: ONABOTULINUMTOXINA
     Dosage: UNK
  30. PROPRANOLOL HCL [Concomitant]
     Active Substance: PROPRANOLOL HYDROCHLORIDE
     Dosage: UNK
  31. FIBER LAX [Concomitant]
     Active Substance: CALCIUM POLYCARBOPHIL
  32. METHYLPREDNISOLONE. [Concomitant]
     Active Substance: METHYLPREDNISOLONE

REACTIONS (8)
  - Product use in unapproved indication [Unknown]
  - Headache [Unknown]
  - Decreased appetite [Unknown]
  - Drug hypersensitivity [Unknown]
  - Feeling abnormal [Unknown]
  - Nausea [Unknown]
  - Migraine [Unknown]
  - Fatigue [Unknown]

NARRATIVE: CASE EVENT DATE: 202005
